FAERS Safety Report 7167047-6 (Version None)
Quarter: 2010Q4

REPORT INFORMATION
  Report Type: 
  Country: None (occurrence: None)
  Receive Date: 20101216
  Receipt Date: 20101208
  Transmission Date: 20110411
  Serious: Yes (Hospitalization)
  Sender: FDA-Public Use
  Company Number: B0689026A

PATIENT

DRUGS (2)
  1. HYCAMTIN [Suspect]
     Indication: SMALL CELL LUNG CANCER RECURRENT
     Route: 065
  2. SECTRAL [Suspect]
     Route: 065

REACTIONS (3)
  - HYPOXIA [None]
  - INFLAMMATION [None]
  - INTERSTITIAL LUNG DISEASE [None]
